FAERS Safety Report 6304260-1 (Version None)
Quarter: 2009Q3

REPORT INFORMATION
  Report Type: 
  Country: None (occurrence: None)
  Receive Date: 20090811
  Receipt Date: 20090730
  Transmission Date: 20100115
  Serious: Yes (Hospitalization)
  Sender: FDA-Public Use
  Company Number: ES-JNJFOC-20090800323

PATIENT
  Age: 47 Year
  Sex: Male

DRUGS (4)
  1. REMICADE [Suspect]
     Indication: COLITIS
     Dosage: 3 INFUSIONS
     Route: 042
  2. EFAVIRENZ [Concomitant]
     Indication: ANTIVIRAL PROPHYLAXIS
  3. TENOFOVIR [Concomitant]
     Indication: ANTIVIRAL PROPHYLAXIS
  4. AZATHIOPRINE [Concomitant]
     Indication: COLITIS

REACTIONS (3)
  - ABSCESS BACTERIAL [None]
  - ORAL HERPES [None]
  - TUBERCULOSIS [None]
